FAERS Safety Report 23304988 (Version 4)
Quarter: 2024Q4

REPORT INFORMATION
  Report Type: Spontaneous
  Country: US (occurrence: US)
  Receive Date: 20231218
  Receipt Date: 20241023
  Transmission Date: 20250115
  Serious: No
  Sender: SANOFI AVENTIS
  Company Number: US-SA-SAC20231212000783

PATIENT
  Age: 1 Year
  Sex: Male

DRUGS (2)
  1. DUPIXENT [Suspect]
     Active Substance: DUPILUMAB
     Indication: Eczema
     Dosage: 200 MG, Q4W
     Route: 058
     Dates: start: 20231108
  2. DUPIXENT [Suspect]
     Active Substance: DUPILUMAB
     Indication: Pharyngitis streptococcal

REACTIONS (8)
  - Middle insomnia [Unknown]
  - Eczema [Unknown]
  - Scratch [Unknown]
  - Skin haemorrhage [Unknown]
  - Pruritus [Unknown]
  - Rash [Unknown]
  - Device use issue [Unknown]
  - Product use in unapproved indication [Unknown]

NARRATIVE: CASE EVENT DATE: 20231101
